FAERS Safety Report 6391474-8 (Version None)
Quarter: 2009Q4

REPORT INFORMATION
  Report Type: 
  Country: None (occurrence: None)
  Receive Date: 20091007
  Receipt Date: 20090923
  Transmission Date: 20100525
  Serious: Yes (Other)
  Sender: FDA-Public Use
  Company Number: CN-PFIZER INC-2009272714

PATIENT

DRUGS (1)
  1. SUTENT [Suspect]
     Indication: MALIGNANT NEOPLASM OF RENAL PELVIS
     Route: 048

REACTIONS (6)
  - DISEASE PROGRESSION [None]
  - GASTRIC ULCER [None]
  - GENERAL PHYSICAL HEALTH DETERIORATION [None]
  - GENITAL ERYTHEMA [None]
  - MALIGNANT NEOPLASM OF RENAL PELVIS [None]
  - VOMITING [None]
